FAERS Safety Report 7085506-1 (Version None)
Quarter: 2010Q4

REPORT INFORMATION
  Report Type: 
  Country: None (occurrence: None)
  Receive Date: 20101005
  Receipt Date: 20100715
  Transmission Date: 20110411
  Serious: Yes (Other)
  Sender: FDA-Public Use
  Company Number: US-WYE-H16225310

PATIENT
  Sex: Male

DRUGS (1)
  1. RAPAMUNE [Suspect]
     Dosage: 2 MG (FREQUENCY NOT PROVIDED)
     Dates: end: 20100711

REACTIONS (1)
  - HEPATIC INFECTION [None]
